FAERS Safety Report 9804226 (Version 2)
Quarter: 2014Q1

REPORT INFORMATION
  Report Type: Spontaneous
  Country: US (occurrence: US)
  Receive Date: 20140108
  Receipt Date: 20140108
  Transmission Date: 20141002
  Serious: Yes (Other)
  Sender: FDA-Public Use
  Company Number: US-BAYER-2013-091467

PATIENT
  Age: 84 Year
  Sex: Male
  Weight: 86 kg

DRUGS (10)
  1. QVAR [Concomitant]
     Indication: ASTHMA
     Dosage: 80 MG, BID
     Dates: start: 201312
  2. CENTRUM [Concomitant]
     Indication: SUPPLEMENTATION THERAPY
     Dosage: UNK UNK, TID
     Dates: start: 2008
  3. VITAMIN D3 [Concomitant]
     Indication: SUPPLEMENTATION THERAPY
     Dosage: 1000 IU,TIW
     Dates: start: 2008
  4. VITAMIN B12 [Concomitant]
     Indication: SUPPLEMENTATION THERAPY
     Dosage: 1000 MG, TIW
     Dates: start: 2008
  5. Q10 [Concomitant]
     Indication: SUPPLEMENTATION THERAPY
     Dosage: 100 MG, TIW
     Dates: start: 2008
  6. BAYER ASPIRIN REGIMEN ADULT LOW STRENGTH [Suspect]
     Indication: CEREBROVASCULAR ACCIDENT PROPHYLAXIS
     Dosage: 1-3 DF, QD
     Route: 048
     Dates: start: 200804, end: 201211
  7. AGGRENOX [Concomitant]
  8. ALLEGRA [Concomitant]
     Indication: ASTHMA
     Dosage: 180 MG, QD
     Dates: start: 2010
  9. ZYRTEC [Concomitant]
     Dosage: 10 MG, QD
     Dates: start: 2012
  10. CLOPIDOGREL [Concomitant]
     Indication: CEREBROVASCULAR ACCIDENT PROPHYLAXIS
     Dosage: 75 MG, QD
     Dates: start: 201209

REACTIONS (8)
  - Haemorrhage [None]
  - Haemorrhage [None]
  - Haemorrhage subcutaneous [None]
  - Haemorrhage subcutaneous [None]
  - Contusion [None]
  - Contusion [None]
  - Contusion [Not Recovered/Not Resolved]
  - Off label use [None]
